FAERS Safety Report 8696642 (Version 2)
Quarter: 2013Q4

REPORT INFORMATION
  Report Type: Spontaneous
  Country: US (occurrence: US)
  Receive Date: 20120801
  Receipt Date: 20131031
  Transmission Date: 20140711
  Serious: Yes (Death, Other)
  Sender: FDA-Public Use
  Company Number: US-009507513-84110043

PATIENT
  Sex: Male

DRUGS (7)
  1. DECADRON [Suspect]
     Route: 048
     Dates: start: 19820929
  2. MOTRIN [Concomitant]
     Route: 048
     Dates: start: 19820929
  3. VALIUM [Concomitant]
     Dates: start: 19820929
  4. XYLOCAINE [Concomitant]
     Dates: start: 19820929
  5. LANOXIN [Concomitant]
     Dates: start: 19820929
  6. INDERAL [Concomitant]
     Dates: start: 19820929
  7. ZOMAX [Concomitant]
     Route: 048
     Dates: start: 19820929

REACTIONS (1)
  - Toxic shock syndrome [Fatal]
